FAERS Safety Report 8209571-0 (Version None)
Quarter: 2012Q1

REPORT INFORMATION
  Report Type: 
  Country: None (occurrence: None)
  Receive Date: 20120314
  Receipt Date: 20120312
  Transmission Date: 20120608
  Serious: Yes (Other)
  Sender: FDA-Public Use
  Company Number: JP-PFIZER INC-2012047684

PATIENT
  Age: 86 Year
  Sex: Male

DRUGS (2)
  1. PREDNISOLONE [Concomitant]
     Dosage: 80 MG, 1X/DAY
     Route: 048
  2. SOLU-MEDROL [Suspect]
     Dosage: 1000 MG, 1X/DAY

REACTIONS (6)
  - STEVENS-JOHNSON SYNDROME [None]
  - HAEMORRHAGE SUBCUTANEOUS [None]
  - ALANINE AMINOTRANSFERASE INCREASED [None]
  - ASPARTATE AMINOTRANSFERASE INCREASED [None]
  - PLATELET COUNT DECREASED [None]
  - PSYCHIATRIC SYMPTOM [None]
